FAERS Safety Report 14944327 (Version 3)
Quarter: 2018Q3

REPORT INFORMATION
  Report Type: Report from Study
  Country: US (occurrence: US)
  Receive Date: 20180528
  Receipt Date: 20180810
  Transmission Date: 20181010
  Serious: Yes (Hospitalization, Other)
  Sender: FDA-Public Use
  Company Number: PHEH2018US016444

PATIENT
  Sex: Male

DRUGS (1)
  1. ENTRESTO [Suspect]
     Active Substance: SACUBITRIL\VALSARTAN
     Indication: PRODUCT USED FOR UNKNOWN INDICATION
     Route: 048

REACTIONS (6)
  - Blood pressure increased [Unknown]
  - Myocardial infarction [Unknown]
  - Viral infection [Recovered/Resolved]
  - Arthritis [Unknown]
  - Arrhythmia [Recovering/Resolving]
  - Heart rate irregular [Unknown]
